FAERS Safety Report 24098251 (Version 1)
Quarter: 2024Q3

REPORT INFORMATION
  Report Type: Spontaneous
  Country: US (occurrence: None)
  Receive Date: 20240716
  Receipt Date: 20240716
  Transmission Date: 20241016
  Serious: Yes (Hospitalization, Other)
  Sender: Public
  Company Number: None

PATIENT
  Age: 87 Year
  Sex: Male
  Weight: 85 kg

DRUGS (1)
  1. ABECMA [Suspect]
     Active Substance: IDECABTAGENE VICLEUCEL

REACTIONS (2)
  - Immune effector cell-associated neurotoxicity syndrome [None]
  - Infusion related reaction [None]

NARRATIVE: CASE EVENT DATE: 20240609
